FAERS Safety Report 5753037-4 (Version None)
Quarter: 2008Q2

REPORT INFORMATION
  Report Type: 
  Country: None (occurrence: None)
  Receive Date: 20080527
  Receipt Date: 20080513
  Transmission Date: 20081010
  Serious: Yes (Hospitalization)
  Sender: FDA-Public Use
  Company Number: 100#08#2008-02690

PATIENT
  Age: 42 Year
  Sex: Female

DRUGS (2)
  1. LEFLUNOMIDE [Suspect]
     Indication: ARTHRITIS
     Dosage: 100 MG/DAY; 20 MG/DAY
  2. PREDNISOLONE [Concomitant]

REACTIONS (3)
  - CUTANEOUS LUPUS ERYTHEMATOSUS [None]
  - LEUKOPENIA [None]
  - MUCOSAL ULCERATION [None]
